FAERS Safety Report 6445033-9 (Version None)
Quarter: 2009Q4

REPORT INFORMATION
  Report Type: 
  Country: None (occurrence: None)
  Receive Date: 20091118
  Receipt Date: 20091110
  Transmission Date: 20100525
  Serious: Yes (Life-Threatening, Hospitalization)
  Sender: FDA-Public Use
  Company Number: FR-PFIZER INC-2009295353

PATIENT
  Age: 77 Year
  Sex: Female

DRUGS (10)
  1. ZYVOXID [Suspect]
     Dosage: UNK
     Dates: start: 20081012, end: 20091017
  2. TAVANIC [Suspect]
     Dosage: UNK
     Dates: start: 20091011, end: 20091017
  3. BACTRIM [Suspect]
     Dosage: UNK
     Dates: start: 20091012, end: 20091019
  4. FORTUM [Suspect]
     Dosage: UNK
     Dates: start: 20091011, end: 20091019
  5. HEPARIN ^PANPHARMA^ [Suspect]
     Dosage: UNK
     Dates: start: 20091012, end: 20091022
  6. PREVISCAN [Concomitant]
  7. SECTRAL [Concomitant]
  8. NOVONORM [Concomitant]
  9. HEMIGOXINE NATIVELLE [Concomitant]
  10. ACTOS [Concomitant]

REACTIONS (1)
  - HEPARIN-INDUCED THROMBOCYTOPENIA [None]
